FAERS Safety Report 5325601-8 (Version None)
Quarter: 2007Q2

REPORT INFORMATION
  Report Type: 
  Country: None (occurrence: None)
  Receive Date: 20070515
  Receipt Date: 20070503
  Transmission Date: 20071010
  Serious: Yes (Other)
  Sender: FDA-Public Use
  Company Number: US-PFIZER INC-2006121108

PATIENT
  Sex: Female

DRUGS (2)
  1. CELEBREX [Suspect]
     Indication: PAIN MANAGEMENT
     Dates: start: 20040610, end: 20040709
  2. VIOXX [Suspect]
     Dates: start: 20031028, end: 20040217

REACTIONS (2)
  - ANXIETY [None]
  - ISCHAEMIC STROKE [None]
